FAERS Safety Report 13927359 (Version 3)
Quarter: 2017Q4

REPORT INFORMATION
  Report Type: Report from Study
  Country: US (occurrence: US)
  Receive Date: 20170831
  Receipt Date: 20171103
  Transmission Date: 20180320
  Serious: Yes (Other)
  Sender: FDA-Public Use
  Company Number: US-VIFOR (INTERNATIONAL) INC.-VIT-2017-08873

PATIENT
  Age: 68 Year
  Sex: Male
  Weight: 83.46 kg

DRUGS (12)
  1. VELTASSA [Suspect]
     Active Substance: PATIROMER
     Indication: HYPERKALAEMIA
     Route: 048
     Dates: start: 20160504
  2. CRESTOR [Concomitant]
     Active Substance: ROSUVASTATIN CALCIUM
     Route: 048
  3. METOPROLOL SUCCINATE. [Concomitant]
     Active Substance: METOPROLOL SUCCINATE
     Route: 048
     Dates: start: 20160203
  4. ACETYLSALICYLIC ACID [Concomitant]
     Active Substance: ASPIRIN
     Route: 048
  5. ASCORBIC ACID~~PYRIDOXINE HYDROCHLORIDE~~TOCOPHERYL ACETATE~~THIAMINE HYDROCHLORIDE~~COLECALCIFEROL~ [Concomitant]
     Route: 048
  6. ISOSORBIDE DINITRATE. [Concomitant]
     Active Substance: ISOSORBIDE DINITRATE
     Route: 048
  7. OCUVITE [Concomitant]
     Active Substance: VITAMINS
     Route: 048
  8. LISINOPRIL. [Concomitant]
     Active Substance: LISINOPRIL
     Route: 048
     Dates: start: 20160504
  9. CIALIS [Concomitant]
     Active Substance: TADALAFIL
     Route: 048
     Dates: start: 20170412
  10. LASIX [Concomitant]
     Active Substance: FUROSEMIDE
     Dosage: 1/2 TABLET TWICE A DAY
     Route: 048
     Dates: start: 20150925
  11. SODIUM BICARBONATE. [Concomitant]
     Active Substance: SODIUM BICARBONATE
     Route: 048
     Dates: start: 20160128
  12. HYDRALAZINE [Concomitant]
     Active Substance: HYDRALAZINE HYDROCHLORIDE
     Route: 048

REACTIONS (7)
  - Dyspnoea [Unknown]
  - Fatigue [Unknown]
  - Weight increased [Unknown]
  - Cellulitis [Recovered/Resolved]
  - Gout [Recovering/Resolving]
  - Oedema [Unknown]
  - Pain in extremity [Recovering/Resolving]

NARRATIVE: CASE EVENT DATE: 201708
